FAERS Safety Report 8241011-8 (Version None)
Quarter: 2012Q1

REPORT INFORMATION
  Report Type: 
  Country: None (occurrence: None)
  Receive Date: 20120328
  Receipt Date: 20120323
  Transmission Date: 20120608
  Serious: Yes (Hospitalization, Disabling, Other)
  Sender: FDA-Public Use
  Company Number: US-MERCK-1107USA03582

PATIENT
  Age: 55 Year
  Sex: Female
  Weight: 57 kg

DRUGS (9)
  1. CALCIUM (UNSPECIFIED) [Concomitant]
     Route: 065
  2. ALENDRONATE SODIUM [Suspect]
     Indication: OSTEOPENIA
     Route: 048
     Dates: start: 20081022, end: 20100419
  3. FOSAMAX [Suspect]
     Indication: OSTEOPENIA
     Route: 048
     Dates: start: 19960101, end: 20100601
  4. FOSAMAX [Suspect]
     Route: 048
     Dates: start: 20000705, end: 20010125
  5. FOSAMAX [Suspect]
     Indication: OSTEOPOROSIS
     Route: 048
     Dates: start: 20081022, end: 20100419
  6. FOSAMAX [Suspect]
     Route: 048
     Dates: start: 20000705, end: 20010125
  7. FOSAMAX [Suspect]
     Route: 048
     Dates: start: 20010311, end: 20110101
  8. FOSAMAX [Suspect]
     Indication: OSTEOPOROSIS
     Route: 048
     Dates: start: 19960101, end: 20100601
  9. FOSAMAX [Suspect]
     Route: 048
     Dates: start: 20010311, end: 20110101

REACTIONS (36)
  - MITRAL VALVE INCOMPETENCE [None]
  - GINGIVAL RECESSION [None]
  - FOOT FRACTURE [None]
  - ANAEMIA POSTOPERATIVE [None]
  - DIARRHOEA [None]
  - PAIN IN EXTREMITY [None]
  - BLOOD CHOLESTEROL INCREASED [None]
  - FAMILY STRESS [None]
  - COLONIC POLYP [None]
  - POST PROCEDURAL CONSTIPATION [None]
  - GASTROENTERITIS VIRAL [None]
  - HAEMORRHOIDS [None]
  - OESOPHAGEAL SPASM [None]
  - OCCULT BLOOD [None]
  - BODY HEIGHT DECREASED [None]
  - ANXIETY [None]
  - CHEST PAIN [None]
  - MASS [None]
  - LOW TURNOVER OSTEOPATHY [None]
  - FEMUR FRACTURE [None]
  - POST PROCEDURAL HAEMORRHAGE [None]
  - BLOOD PRESSURE INCREASED [None]
  - APHTHOUS STOMATITIS [None]
  - GASTROOESOPHAGEAL REFLUX DISEASE [None]
  - LYMPHOCYTOSIS [None]
  - JAW FRACTURE [None]
  - VERTIGO [None]
  - POLLAKIURIA [None]
  - DYSURIA [None]
  - FALL [None]
  - THYROID DISORDER [None]
  - HYPERLIPIDAEMIA [None]
  - GINGIVAL BLEEDING [None]
  - TINNITUS [None]
  - URINARY TRACT INFECTION [None]
  - RECTAL POLYP [None]
